FAERS Safety Report 15661896 (Version 3)
Quarter: 2019Q1

REPORT INFORMATION
  Report Type: Report from Study
  Country: US (occurrence: US)
  Receive Date: 20181127
  Receipt Date: 20190220
  Transmission Date: 20190417
  Serious: Yes (Other)
  Sender: FDA-Public Use
  Company Number: PHEH2018US049471

PATIENT
  Sex: Female
  Weight: 74.83 kg

DRUGS (1)
  1. COSENTYX [Suspect]
     Active Substance: SECUKINUMAB
     Indication: ANKYLOSING SPONDYLITIS
     Dosage: 150 MG, QMO
     Route: 058
     Dates: start: 20170412

REACTIONS (4)
  - Arthritis [Not Recovered/Not Resolved]
  - Ankylosing spondylitis [Unknown]
  - Back pain [Unknown]
  - Fall [Unknown]
